FAERS Safety Report 19416793 (Version 1)
Quarter: 2021Q2

REPORT INFORMATION
  Report Type: Spontaneous
  Country: SE (occurrence: SE)
  Receive Date: 20210614
  Receipt Date: 20210614
  Transmission Date: 20210717
  Serious: Yes (Congenital Anomaly, Other)
  Sender: FDA-Public Use
  Company Number: NVSC2021SE128114

PATIENT
  Sex: Male

DRUGS (2)
  1. LAMOTRIGINE. [Suspect]
     Active Substance: LAMOTRIGINE
     Indication: FOETAL EXPOSURE DURING PREGNANCY
     Dosage: MATERNAL DOSE: UNK
     Route: 064
  2. VALPROIC ACID. [Suspect]
     Active Substance: VALPROIC ACID
     Indication: FOETAL EXPOSURE DURING PREGNANCY
     Dosage: MATERNAL DOSE: 2000 MG, QD, 1ST TRIMESTER
     Route: 064

REACTIONS (5)
  - Opitz trigonocephaly syndrome [Unknown]
  - Hypospadias [Unknown]
  - Foetal exposure during pregnancy [Unknown]
  - Patent ductus arteriosus [Unknown]
  - Ventricular septal defect [Unknown]
